FAERS Safety Report 24185088 (Version 1)
Quarter: 2024Q3

REPORT INFORMATION
  Report Type: Spontaneous
  Country: SE (occurrence: SE)
  Receive Date: 20240807
  Receipt Date: 20240807
  Transmission Date: 20241017
  Serious: Yes (Other)
  Sender: MYLAN
  Company Number: None

PATIENT
  Age: 22 Year
  Sex: Female

DRUGS (6)
  1. OLANZAPINE [Suspect]
     Active Substance: OLANZAPINE
     Indication: Product used for unknown indication
     Dosage: 5 MILLIGRAM, QD
     Route: 065
     Dates: start: 202405
  2. PARAFLEX [Concomitant]
     Active Substance: CHLORZOXAZONE
     Dosage: 250 MILLIGRAM, PRN (1 AS NECESSARY, 1 TABLET WHEN NEEDED, MAXIMUM 4 TABLETS PER DAY)
     Route: 065
     Dates: start: 20231108
  3. Aritonin [Concomitant]
     Dosage: BID (0.5 TABLET AT 19:00 AND 0.5-1.5 TABLETS AT 21:00)
     Route: 065
     Dates: start: 20230906
  4. ATARAX [Concomitant]
     Active Substance: HYDROXYZINE HYDROCHLORIDE
     Dosage: 25 MILLIGRAM, PRN (1 TABLET WHEN NEEDED, MAXIMUM 2 TABLETS PER DAY)
     Route: 065
     Dates: start: 20240514
  5. DIENOGEST\ETHINYL ESTRADIOL [Concomitant]
     Active Substance: DIENOGEST\ETHINYL ESTRADIOL
     Dosage: 1 DOSAGE FORM, QD (1 TABLET ONCE DAILY)
     Route: 065
     Dates: start: 20221205
  6. PRUCALOPRIDE SUCCINATE [Concomitant]
     Active Substance: PRUCALOPRIDE SUCCINATE
     Dosage: 2 MILLIGRAM, QD (1 TABLET ONCE DAILY)
     Route: 065
     Dates: start: 20230105

REACTIONS (5)
  - Weight increased [Unknown]
  - Impaired quality of life [Unknown]
  - General physical health deterioration [Unknown]
  - Dyspnoea [Unknown]
  - Anxiety [Unknown]

NARRATIVE: CASE EVENT DATE: 20240501
